FAERS Safety Report 9518196 (Version 2)
Quarter: 2013Q3

REPORT INFORMATION
  Report Type: Report from Study
  Country: JP (occurrence: JP)
  Receive Date: 20130912
  Receipt Date: 20130912
  Transmission Date: 20140515
  Serious: Yes (Hospitalization)
  Sender: FDA-Public Use
  Company Number: JP-JNJFOC-20121003048

PATIENT
  Age: 75 Year
  Sex: Female

DRUGS (2)
  1. ONE DURO [Suspect]
     Indication: CANCER PAIN
     Route: 062
     Dates: start: 20111110, end: 20111111
  2. NAIXAN [Concomitant]
     Indication: CANCER PAIN
     Route: 048

REACTIONS (1)
  - Drug intolerance [Unknown]
